FAERS Safety Report 12384473 (Version 2)
Quarter: 2016Q3

REPORT INFORMATION
  Report Type: Spontaneous
  Country: US (occurrence: US)
  Receive Date: 20160519
  Receipt Date: 20160902
  Transmission Date: 20161109
  Serious: No
  Sender: FDA-Public Use
  Company Number: US-009507513-1605USA009381

PATIENT
  Age: 23 Year
  Sex: Female
  Weight: 196 kg

DRUGS (1)
  1. NEXPLANON [Suspect]
     Active Substance: ETONOGESTREL
     Indication: CONTRACEPTION
     Dosage: 68 MG EVERY THREE YEARS IN THE LEFT ARM
     Route: 059
     Dates: start: 20150313, end: 20160822

REACTIONS (6)
  - Implant site pain [Not Recovered/Not Resolved]
  - Amenorrhoea [Unknown]
  - Device breakage [Recovered/Resolved]
  - Device kink [Recovered/Resolved]
  - Device difficult to use [Recovered/Resolved]
  - Device deployment issue [Recovered/Resolved]

NARRATIVE: CASE EVENT DATE: 20150313
